FAERS Safety Report 23432008 (Version 1)
Quarter: 2024Q1

REPORT INFORMATION
  Report Type: Spontaneous
  Country: JP (occurrence: JP)
  Receive Date: 20240123
  Receipt Date: 20240123
  Transmission Date: 20240410
  Serious: Yes (Life-Threatening, Other)
  Sender: FDA-Public Use
  Company Number: JP-BRISTOL-MYERS SQUIBB COMPANY-2023-040969

PATIENT
  Age: 55 Year
  Sex: Male

DRUGS (16)
  1. YERVOY [Suspect]
     Active Substance: IPILIMUMAB
     Indication: Lung adenocarcinoma
  2. YERVOY [Suspect]
     Active Substance: IPILIMUMAB
     Indication: Metastases to lung
     Dosage: CYCLE 2 PERFORMED ON DAY 22
  3. YERVOY [Suspect]
     Active Substance: IPILIMUMAB
     Indication: Lung adenocarcinoma stage IV
  4. YERVOY [Suspect]
     Active Substance: IPILIMUMAB
     Indication: Intestinal metastasis
  5. OPDIVO [Suspect]
     Active Substance: NIVOLUMAB
     Indication: Lung adenocarcinoma
  6. OPDIVO [Suspect]
     Active Substance: NIVOLUMAB
     Indication: Lung adenocarcinoma stage IV
     Dosage: CYCLE 2  PERFORMED ON DAY 22
  7. OPDIVO [Suspect]
     Active Substance: NIVOLUMAB
     Indication: Intestinal metastasis
  8. OPDIVO [Suspect]
     Active Substance: NIVOLUMAB
     Indication: Metastases to lung
  9. PACLITAXEL [Suspect]
     Active Substance: PACLITAXEL
     Indication: Lung adenocarcinoma
     Dosage: 1 CYCLE
  10. PACLITAXEL [Suspect]
     Active Substance: PACLITAXEL
     Indication: Intestinal metastasis
     Dosage: CYCLE 2 PERFORMED ON DAY 22
  11. PACLITAXEL [Suspect]
     Active Substance: PACLITAXEL
     Indication: Metastases to lung
  12. PACLITAXEL [Suspect]
     Active Substance: PACLITAXEL
     Indication: Lung adenocarcinoma stage IV
  13. CARBOPLATIN [Suspect]
     Active Substance: CARBOPLATIN
     Indication: Lung adenocarcinoma
     Dosage: AUC 5
  14. CARBOPLATIN [Suspect]
     Active Substance: CARBOPLATIN
     Indication: Intestinal metastasis
     Dosage: CYCLE 2 PERFORMED ON DAY 22
  15. CARBOPLATIN [Suspect]
     Active Substance: CARBOPLATIN
     Indication: Metastases to lung
  16. CARBOPLATIN [Suspect]
     Active Substance: CARBOPLATIN
     Indication: Lung adenocarcinoma stage IV

REACTIONS (3)
  - Rash [Unknown]
  - Neutropenia [Unknown]
  - Tumour pseudoprogression [Unknown]
